FAERS Safety Report 7966554-3 (Version None)
Quarter: 2011Q4

REPORT INFORMATION
  Report Type: 
  Country: None (occurrence: None)
  Receive Date: 20111208
  Receipt Date: 20111128
  Transmission Date: 20120403
  Serious: Yes (Hospitalization)
  Sender: FDA-Public Use
  Company Number: US-ELI_LILLY_AND_COMPANY-US201109006422

PATIENT
  Sex: Female

DRUGS (11)
  1. CALCIUM W/VITAMIN D NOS [Concomitant]
     Dosage: UNK, BID
  2. FORTEO [Suspect]
     Dosage: 20 UG, QD
  3. FOLIC ACID [Concomitant]
     Dosage: 400 UG, QD
  4. PROTONIX [Concomitant]
  5. PERCOCET [Concomitant]
     Indication: PAIN
  6. PLAQUENIL [Concomitant]
     Indication: SYSTEMIC LUPUS ERYTHEMATOSUS
  7. MULTI-VITAMIN [Concomitant]
     Dosage: UNK, QD
  8. DULCOLAX [Concomitant]
     Indication: DIARRHOEA
  9. ZOCOR [Concomitant]
  10. FORTEO [Suspect]
     Indication: OSTEOPOROSIS
     Dosage: 20 UG, QD
     Dates: start: 20110401
  11. ENALAPRIL MALEATE [Concomitant]

REACTIONS (5)
  - GALLBLADDER ENLARGEMENT [None]
  - GASTROOESOPHAGEAL REFLUX DISEASE [None]
  - WEIGHT DECREASED [None]
  - ABDOMINAL DISCOMFORT [None]
  - PAIN [None]
